FAERS Safety Report 8615317-4 (Version None)
Quarter: 2012Q3

REPORT INFORMATION
  Report Type: 
  Country: None (occurrence: None)
  Receive Date: 20120823
  Receipt Date: 20120814
  Transmission Date: 20120928
  Serious: Yes (Other)
  Sender: FDA-Public Use
  Company Number: US-ELI_LILLY_AND_COMPANY-US201208004965

PATIENT
  Age: 25 Year
  Sex: Female

DRUGS (6)
  1. ZYPREXA [Suspect]
     Dosage: 2.5 MG, BID
  2. FLUOXETINE HYDROCHLORIDE [Concomitant]
     Dosage: 1 DF, UNKNOWN
  3. CLOZAPINE [Concomitant]
     Dosage: 1 DF, UNKNOWN
  4. TOPAMAX [Concomitant]
     Dosage: 1 DF, UNKNOWN
  5. BUSPAR [Concomitant]
     Dosage: 1 DF, UNKNOWN
  6. ZYPREXA [Suspect]
     Indication: SCHIZOPHRENIA
     Dosage: 2.5 MG, QD

REACTIONS (1)
  - WEIGHT INCREASED [None]
